FAERS Safety Report 22207233 (Version 2)
Quarter: 2023Q2

REPORT INFORMATION
  Report Type: Spontaneous
  Country: US (occurrence: US)
  Receive Date: 20230413
  Receipt Date: 20230519
  Transmission Date: 20230722
  Serious: No
  Sender: FDA-Public Use
  Company Number: US-PFIZER INC-PV202300015905

PATIENT
  Age: 69 Year
  Sex: Female

DRUGS (3)
  1. IBRANCE [Suspect]
     Active Substance: PALBOCICLIB
     Dosage: 125 MG, CYCLIC (1 TABLET DAILY 7 DAYS ON AND 7 DAYS OFF)
     Route: 048
     Dates: start: 20230206
  2. IBRANCE [Suspect]
     Active Substance: PALBOCICLIB
     Dosage: 125 MG, CYCLIC, DAILY X21 DAYS THEN 7 DAYS OFF
     Route: 048
  3. ANASTROZOLE [Concomitant]
     Active Substance: ANASTROZOLE
     Dosage: UNK

REACTIONS (5)
  - Off label use [Unknown]
  - Product use issue [Unknown]
  - Drug dispensed to wrong patient [Unknown]
  - Weight decreased [Unknown]
  - Tooth disorder [Not Recovered/Not Resolved]
